FAERS Safety Report 7534889-4 (Version None)
Quarter: 2011Q2

REPORT INFORMATION
  Report Type: 
  Country: None (occurrence: None)
  Receive Date: 20110609
  Receipt Date: 20081112
  Transmission Date: 20111010
  Serious: Yes (Death)
  Sender: FDA-Public Use
  Company Number: PHHY2008JP10642

PATIENT
  Sex: Female

DRUGS (1)
  1. ZOMETA [Suspect]
     Indication: BREAST CANCER
     Dosage: 4 MG DILUTED TO 100 ML
     Dates: start: 20061017

REACTIONS (2)
  - RESPIRATORY DISORDER [None]
  - CARDIAC FAILURE [None]
